FAERS Safety Report 5476428-8 (Version None)
Quarter: 2007Q4

REPORT INFORMATION
  Report Type: 
  Country: None (occurrence: None)
  Receive Date: 20071003
  Receipt Date: 20070925
  Transmission Date: 20080405
  Serious: Yes (Death)
  Sender: FDA-Public Use
  Company Number: NL-PFIZER INC-2007081325

PATIENT
  Sex: Female
  Weight: 46 kg

DRUGS (8)
  1. ARTHROTEC [Suspect]
     Indication: BACK PAIN
     Route: 048
  2. EXELON [Suspect]
     Indication: DEMENTIA ALZHEIMER'S TYPE
     Route: 048
  3. ASPIRIN [Suspect]
     Indication: TRANSIENT ISCHAEMIC ATTACK
     Route: 048
  4. HALOPERIDOL [Concomitant]
     Dosage: DAILY DOSE:1MG-FREQ:DAILY
  5. PARACETAMOL [Concomitant]
  6. MONO-CEDOCARD RETARD [Concomitant]
     Dosage: DAILY DOSE:25MG-FREQ:DAILY
  7. OXAZEPAM [Concomitant]
  8. MOVICOLON [Concomitant]
     Dates: start: 20061001

REACTIONS (1)
  - GASTRIC HAEMORRHAGE [None]
